FAERS Safety Report 7352928-0 (Version None)
Quarter: 2011Q1

REPORT INFORMATION
  Report Type: 
  Country: None (occurrence: None)
  Receive Date: 20110304
  Receipt Date: 20110218
  Transmission Date: 20110831
  Serious: Yes (Hospitalization, Other)
  Sender: FDA-Public Use
  Company Number: EU-2011-10022

PATIENT
  Age: 73 Year
  Sex: Male

DRUGS (11)
  1. METFORMIN HCL [Concomitant]
  2. TAMSULOSIN HCL [Concomitant]
  3. CLOPIDOGREL [Concomitant]
  4. PLETAL [Suspect]
     Indication: INTERMITTENT CLAUDICATION
     Dosage: 100 MG MILLIGRAM(S), BID, ORAL
     Route: 048
     Dates: start: 20101217, end: 20110102
  5. OMEPRAZOLE [Concomitant]
  6. HYDROCHLORIAZIDE (HYDROCHLOROTHIAZIDE) [Concomitant]
  7. LANTUS [Concomitant]
  8. MOTILIUM (DOMPERISONE MALEATE) [Concomitant]
  9. HYDREA [Concomitant]
  10. SIMVASTATIN [Concomitant]
  11. ENALAPRIL MALEATE [Concomitant]

REACTIONS (3)
  - COAGULATION TEST ABNORMAL [None]
  - JAUNDICE [None]
  - HEPATITIS CHOLESTATIC [None]
